FAERS Safety Report 4332843-7 (Version None)
Quarter: 2004Q1

REPORT INFORMATION
  Report Type: 
  Country: None (occurrence: None)
  Receive Date: 20040330
  Receipt Date: 20040312
  Transmission Date: 20041129
  Serious: No
  Sender: FDA-Public Use
  Company Number: A01200401175

PATIENT
  Sex: 0

DRUGS (2)
  1. ZOLPIDEM TARTRATE [Suspect]
     Indication: INSOMNIA
     Dosage: MOTHER DOSE: 10 MG EVERY 4-5 DAYS,
     Route: 064
     Dates: start: 20030725, end: 20031107
  2. (DOXYLAMINE) - DROPS - 10 MG/ML [Suspect]
     Indication: INSOMNIA
     Dosage: 12 GTT HS
     Route: 064
     Dates: start: 20030725, end: 20031107

REACTIONS (3)
  - DRUG EXPOSURE DURING PREGNANCY [None]
  - NEONATAL RESPIRATORY DEPRESSION [None]
  - PREMATURE BABY [None]
